FAERS Safety Report 15376278 (Version 2)
Quarter: 2018Q4

REPORT INFORMATION
  Report Type: Spontaneous
  Country: FR (occurrence: FR)
  Receive Date: 20180912
  Receipt Date: 20181003
  Transmission Date: 20190204
  Serious: Yes (Death, Congenital Anomaly, Other)
  Sender: FDA-Public Use
  Company Number: FR-MYLANLABS-2018M1067102

PATIENT
  Sex: Male

DRUGS (3)
  1. CISPLATIN. [Suspect]
     Active Substance: CISPLATIN
     Indication: TESTIS CANCER
     Dosage: 40 MG, CYCLE
     Route: 064
     Dates: start: 20140728, end: 20140801
  2. ETOPOSIDE. [Suspect]
     Active Substance: ETOPOSIDE
     Indication: TESTIS CANCER
     Dosage: 200 MG, CYCLE
     Route: 064
     Dates: start: 20140728, end: 20140801
  3. BLEOMYCINE                         /00183902/ [Suspect]
     Active Substance: BLEOMYCIN SULFATE
     Indication: TESTIS CANCER
     Dosage: 30 MG, CYCLE
     Route: 064
     Dates: start: 20140728, end: 20140811

REACTIONS (2)
  - Trisomy 13 [Fatal]
  - Exposure via father [Not Recovered/Not Resolved]

NARRATIVE: CASE EVENT DATE: 2014
